FAERS Safety Report 7406314-5 (Version None)
Quarter: 2011Q2

REPORT INFORMATION
  Report Type: 
  Country: None (occurrence: None)
  Receive Date: 20110411
  Receipt Date: 20110405
  Transmission Date: 20111010
  Serious: Yes (Other)
  Sender: FDA-Public Use
  Company Number: US-MERCK-1101USA01641

PATIENT
  Age: 76 Year
  Sex: Male

DRUGS (5)
  1. JANUVIA [Suspect]
     Indication: TYPE 2 DIABETES MELLITUS
     Route: 048
     Dates: start: 20100301
  2. DIOVAN [Suspect]
     Route: 065
     Dates: start: 20100101
  3. LEXAPRO [Concomitant]
     Route: 065
  4. WELCHOL [Suspect]
     Route: 048
     Dates: start: 20100101
  5. JANUVIA [Suspect]
     Route: 048
     Dates: start: 20110301

REACTIONS (3)
  - EPISTAXIS [None]
  - WRONG TECHNIQUE IN DRUG USAGE PROCESS [None]
  - RHINITIS [None]
